FAERS Safety Report 23075112 (Version 2)
Quarter: 2023Q4

REPORT INFORMATION
  Report Type: Spontaneous
  Country: JP (occurrence: JP)
  Receive Date: 20231017
  Receipt Date: 20231113
  Transmission Date: 20240110
  Serious: Yes (Other)
  Sender: FDA-Public Use
  Company Number: JP-PFIZER INC-PV202300168713

PATIENT
  Age: 83 Year
  Sex: Male

DRUGS (14)
  1. PAXLOVID [Suspect]
     Active Substance: NIRMATRELVIR\RITONAVIR
     Indication: COVID-19 treatment
     Dosage: [NIRMATRELVIR 300 MG]/[RITONAVIR 100 MG]; 2X/DAY
     Route: 048
     Dates: start: 20230930, end: 20231003
  2. CEFACLOR [Concomitant]
     Active Substance: CEFACLOR
     Dosage: 500 MG, 3X/DAY
     Route: 048
     Dates: start: 20230930
  3. CALONAL [Concomitant]
     Active Substance: ACETAMINOPHEN
     Dosage: 400 MG, AS NEEDED
     Route: 048
     Dates: start: 20230930
  4. NAFTOPIDIL [Concomitant]
     Active Substance: NAFTOPIDIL
     Dosage: 75 MG, 1X/DAY
     Route: 048
  5. CARBIDOPA\LEVODOPA [Concomitant]
     Active Substance: CARBIDOPA\LEVODOPA
     Dosage: 100 MG, 3X/DAY
     Route: 048
  6. CARBIDOPA\LEVODOPA [Concomitant]
     Active Substance: CARBIDOPA\LEVODOPA
     Dosage: 50 MG, 1X/DAY
     Route: 048
  7. ASPIRIN [Concomitant]
     Active Substance: ASPIRIN
     Dosage: 100 MG, 1X/DAY
     Route: 048
  8. RABEPRAZOLE SODIUM [Concomitant]
     Active Substance: RABEPRAZOLE SODIUM
     Dosage: 10 MG, 1X/DAY
     Route: 048
  9. CANDESARTAN [Concomitant]
     Active Substance: CANDESARTAN
     Indication: Hypertension
     Dosage: 8 MG, 1X/DAY
     Route: 048
  10. ISOSORBIDE MONONITRATE [Concomitant]
     Active Substance: ISOSORBIDE MONONITRATE
     Dosage: 20 MG, 2X/DAY
     Route: 048
  11. PRAVASTATIN SODIUM [Concomitant]
     Active Substance: PRAVASTATIN SODIUM
     Dosage: 5 MG, 1X/DAY
     Route: 048
  12. KETOPROFEN [Concomitant]
     Active Substance: KETOPROFEN
     Dosage: 20 MG, 1X/DAY
     Route: 062
  13. MAGNESIUM OXIDE [Concomitant]
     Active Substance: MAGNESIUM OXIDE
     Dosage: 660 MG, 3X/DAY
     Route: 048
  14. ELOBIXIBAT [Concomitant]
     Active Substance: ELOBIXIBAT
     Dosage: 15 MG, 1X/DAY
     Route: 048

REACTIONS (1)
  - Hallucination [Unknown]

NARRATIVE: CASE EVENT DATE: 20231003
